FAERS Safety Report 6067143-0 (Version None)
Quarter: 2009Q1

REPORT INFORMATION
  Report Type: 
  Country: None (occurrence: None)
  Receive Date: 20090203
  Receipt Date: 20090128
  Transmission Date: 20090719
  Serious: Yes (Hospitalization)
  Sender: FDA-Public Use
  Company Number: SPV1-2009-00146

PATIENT
  Age: 8 Year
  Sex: Male

DRUGS (1)
  1. VYVANSE [Suspect]
     Indication: ATTENTION DEFICIT/HYPERACTIVITY DISORDER
     Dosage: 20 MG, 1X/DAY, QD, ORAL
     Route: 048
     Dates: start: 20081201

REACTIONS (2)
  - ABDOMINAL PAIN [None]
  - GASTROINTESTINAL DISORDER [None]
